FAERS Safety Report 24171612 (Version 2)
Quarter: 2024Q4

REPORT INFORMATION
  Report Type: Spontaneous
  Country: JP (occurrence: JP)
  Receive Date: 20240805
  Receipt Date: 20241206
  Transmission Date: 20250114
  Serious: Yes (Hospitalization, Other)
  Sender: BRISTOL-MYERS SQUIBB COMPANY
  Company Number: JP-BRISTOL-MYERS SQUIBB COMPANY-2024-121073

PATIENT

DRUGS (2)
  1. YERVOY [Suspect]
     Active Substance: IPILIMUMAB
     Indication: Malignant melanoma
     Route: 041
  2. OPDIVO [Suspect]
     Active Substance: NIVOLUMAB
     Indication: Malignant melanoma
     Route: 041

REACTIONS (2)
  - Enterocolitis [Not Recovered/Not Resolved]
  - Pancreatitis [Not Recovered/Not Resolved]
